FAERS Safety Report 6392436-7 (Version None)
Quarter: 2009Q4

REPORT INFORMATION
  Report Type: 
  Country: None (occurrence: None)
  Receive Date: 20091007
  Receipt Date: 20090930
  Transmission Date: 20100525
  Serious: Yes (Death, Other)
  Sender: FDA-Public Use
  Company Number: GB-CELGENEUS-167-20785-09100137

PATIENT

DRUGS (6)
  1. THALIDOMIDE\PLACEBO [Suspect]
     Indication: NON-SMALL CELL LUNG CANCER
     Route: 048
  2. THALIDOMIDE\PLACEBO [Suspect]
     Route: 048
  3. THALIDOMIDE\PLACEBO [Suspect]
     Route: 048
  4. GEMCITABINE [Suspect]
     Indication: NON-SMALL CELL LUNG CANCER
     Route: 051
  5. CARBOPLATIN [Suspect]
     Indication: NON-SMALL CELL LUNG CANCER
     Route: 065
  6. CYTOTOXIC [Concomitant]
     Indication: DRUG USE FOR UNKNOWN INDICATION
     Route: 065

REACTIONS (21)
  - ANAEMIA [None]
  - CONSTIPATION [None]
  - DECREASED APPETITE [None]
  - DEEP VEIN THROMBOSIS [None]
  - DIARRHOEA [None]
  - DIZZINESS [None]
  - DRY SKIN [None]
  - INFECTION [None]
  - LEUKOPENIA [None]
  - MUCOSAL INFLAMMATION [None]
  - NAUSEA [None]
  - NEPHROPATHY TOXIC [None]
  - NEUTROPENIA [None]
  - NEUTROPENIC INFECTION [None]
  - NON-SMALL CELL LUNG CANCER [None]
  - PERIPHERAL SENSORY NEUROPATHY [None]
  - PULMONARY EMBOLISM [None]
  - RASH [None]
  - SOMNOLENCE [None]
  - THROMBOCYTOPENIA [None]
  - VOMITING [None]
